FAERS Safety Report 9809164 (Version 1)
Quarter: 2014Q1

REPORT INFORMATION
  Report Type: Report from Study
  Country: US (occurrence: US)
  Receive Date: 20140110
  Receipt Date: 20140110
  Transmission Date: 20141002
  Serious: Yes (Other)
  Sender: FDA-Public Use
  Company Number: US-TAKEDA-2014TUS000172

PATIENT
  Sex: 0

DRUGS (2)
  1. COLCRYS [Suspect]
     Indication: GOUT
     Dosage: 0.6 MG, UNK (ONE YEAR DURATION)
     Route: 048
     Dates: start: 201301
  2. ALLOPURINOL [Concomitant]
     Indication: GOUT
     Dosage: 100 MG, UNK
     Route: 048

REACTIONS (1)
  - Hernia [Unknown]
